FAERS Safety Report 17670708 (Version 2)
Quarter: 2020Q2

REPORT INFORMATION
  Report Type: Spontaneous
  Country: US (occurrence: US)
  Receive Date: 20200415
  Receipt Date: 20200519
  Transmission Date: 20200713
  Serious: No
  Sender: FDA-Public Use
  Company Number: US-SA-2020SA095626

PATIENT
  Age: 49 Year
  Sex: Female

DRUGS (1)
  1. KEVZARA [Suspect]
     Active Substance: SARILUMAB
     Indication: RHEUMATOID ARTHRITIS
     Dosage: 200 MG, QOW
     Route: 058
     Dates: start: 20200320

REACTIONS (2)
  - Drug ineffective [Unknown]
  - Headache [Unknown]
